FAERS Safety Report 6200691-9 (Version None)
Quarter: 2009Q2

REPORT INFORMATION
  Report Type: 
  Country: None (occurrence: None)
  Receive Date: 20090522
  Receipt Date: 20090519
  Transmission Date: 20091009
  Serious: Yes (Other)
  Sender: FDA-Public Use
  Company Number: US-MERCK-0905USA02820

PATIENT

DRUGS (1)
  1. INVANZ [Suspect]
     Route: 042

REACTIONS (1)
  - ENCEPHALITIS [None]
